FAERS Safety Report 10367152 (Version 2)
Quarter: 2015Q1

REPORT INFORMATION
  Report Type: Spontaneous
  Country: US (occurrence: US)
  Receive Date: 20140807
  Receipt Date: 20150108
  Transmission Date: 20150720
  Serious: Yes (Other)
  Sender: FDA-Public Use
  Company Number: US-ASTRAZENECA-2014SE55935

PATIENT
  Age: 68 Year
  Sex: Female
  Weight: 62.6 kg

DRUGS (9)
  1. SYMBICORT [Suspect]
     Active Substance: BUDESONIDE\FORMOTEROL FUMARATE DIHYDRATE
     Indication: CHRONIC OBSTRUCTIVE PULMONARY DISEASE
     Dosage: 160/4.5 MCG; 2 PUFFS TWO TIMES A DAY
     Route: 055
     Dates: start: 2012
  2. LISINIPRIL 5MG [Suspect]
     Active Substance: LISINOPRIL
     Indication: BLOOD PRESSURE ABNORMAL
     Route: 048
  3. SYMBICORT [Suspect]
     Active Substance: BUDESONIDE\FORMOTEROL FUMARATE DIHYDRATE
     Indication: CHRONIC OBSTRUCTIVE PULMONARY DISEASE
     Dosage: 160/4.5 MCG; UNKNOWN
     Route: 055
     Dates: start: 20121231
  4. SPIRIVA [Concomitant]
     Active Substance: TIOTROPIUM BROMIDE MONOHYDRATE
     Dosage: NOT ASKED DAILY
     Route: 055
  5. SYMBICORT [Suspect]
     Active Substance: BUDESONIDE\FORMOTEROL FUMARATE DIHYDRATE
     Indication: CHRONIC OBSTRUCTIVE PULMONARY DISEASE
     Dosage: 160/4.5 MCG; 2 PUFFS TWO TIMES A DAY
     Route: 055
     Dates: start: 20140703
  6. PROAIR HFA [Concomitant]
     Active Substance: ALBUTEROL SULFATE
     Dosage: NOT ASKED
     Route: 055
  7. SYMBICORT [Suspect]
     Active Substance: BUDESONIDE\FORMOTEROL FUMARATE DIHYDRATE
     Indication: LUNG DISORDER
     Dosage: 160/4.5 MCG; UNKNOWN
     Route: 055
     Dates: start: 20121231
  8. SYMBICORT [Suspect]
     Active Substance: BUDESONIDE\FORMOTEROL FUMARATE DIHYDRATE
     Indication: LUNG DISORDER
     Dosage: 160/4.5 MCG; 2 PUFFS TWO TIMES A DAY
     Route: 055
     Dates: start: 2012
  9. SYMBICORT [Suspect]
     Active Substance: BUDESONIDE\FORMOTEROL FUMARATE DIHYDRATE
     Indication: LUNG DISORDER
     Dosage: 160/4.5 MCG; 2 PUFFS TWO TIMES A DAY
     Route: 055
     Dates: start: 20140703

REACTIONS (11)
  - Throat irritation [Unknown]
  - Speech disorder [Unknown]
  - Respiratory tract irritation [Unknown]
  - Intentional product misuse [Unknown]
  - Body height decreased [Unknown]
  - Vomiting [Unknown]
  - Dyspnoea [Unknown]
  - Neoplasm malignant [Unknown]
  - Gastritis [Unknown]
  - Gastric disorder [Unknown]
  - Nasopharyngitis [Unknown]

NARRATIVE: CASE EVENT DATE: 2012
